FAERS Safety Report 22240333 (Version 1)
Quarter: 2023Q2

REPORT INFORMATION
  Report Type: Spontaneous
  Country: US (occurrence: US)
  Receive Date: 20230421
  Receipt Date: 20230421
  Transmission Date: 20230722
  Serious: No
  Sender: FDA-Public Use
  Company Number: US-ALLERGAN-2213680US

PATIENT
  Sex: Female
  Weight: 76.19 kg

DRUGS (2)
  1. RESTASIS [Suspect]
     Active Substance: CYCLOSPORINE
     Indication: Dry eye
     Dosage: UNK
     Dates: start: 2021
  2. AFRIN [OXYMETAZOLINE] [Concomitant]
     Indication: Nasal congestion

REACTIONS (4)
  - Nasal congestion [Not Recovered/Not Resolved]
  - Multiple use of single-use product [Unknown]
  - Vision blurred [Not Recovered/Not Resolved]
  - Eye irritation [Recovered/Resolved]
